FAERS Safety Report 24309477 (Version 1)
Quarter: 2024Q3

REPORT INFORMATION
  Report Type: Spontaneous
  Country: US (occurrence: US)
  Receive Date: 20240911
  Receipt Date: 20240911
  Transmission Date: 20241016
  Serious: Yes (Hospitalization, Other)
  Sender: BRISTOL MYERS SQUIBB
  Company Number: US-BRISTOL-MYERS SQUIBB COMPANY-2024-141814

PATIENT
  Age: 83 Year
  Sex: Male

DRUGS (2)
  1. ELIQUIS [Suspect]
     Active Substance: APIXABAN
     Indication: Atrial fibrillation
     Route: 048
  2. VYNDAMAX [Suspect]
     Active Substance: TAFAMIDIS
     Indication: Acquired ATTR amyloidosis
     Route: 048
     Dates: start: 20210625

REACTIONS (9)
  - Gastrointestinal haemorrhage [Unknown]
  - Cardiac failure acute [Unknown]
  - Acute kidney injury [Unknown]
  - Anaemia [Unknown]
  - Barrett^s oesophagus [Unknown]
  - Haematoma [Unknown]
  - Conjunctival haemorrhage [Unknown]
  - Left ventricular hypertrophy [Unknown]
  - Cardiac failure congestive [Unknown]

NARRATIVE: CASE EVENT DATE: 20210101
